FAERS Safety Report 7366105-0 (Version None)
Quarter: 2011Q1

REPORT INFORMATION
  Report Type: 
  Country: None (occurrence: None)
  Receive Date: 20110322
  Receipt Date: 20110308
  Transmission Date: 20110831
  Serious: Yes (Hospitalization)
  Sender: FDA-Public Use
  Company Number: US-JNJFOC-20081005335

PATIENT
  Sex: Female
  Weight: 37.7 kg

DRUGS (3)
  1. REMICADE [Suspect]
     Indication: COLITIS ULCERATIVE
     Dosage: TOTAL 3 DOSES
     Route: 042
  2. REMICADE [Suspect]
     Dosage: INITIAL INFUSION
     Route: 042
  3. CIPRO [Concomitant]

REACTIONS (2)
  - COLITIS ULCERATIVE [None]
  - DEHYDRATION [None]
